FAERS Safety Report 5898626-1 (Version None)
Quarter: 2008Q3

REPORT INFORMATION
  Report Type: 
  Country: None (occurrence: None)
  Receive Date: 20080925
  Receipt Date: 20080311
  Transmission Date: 20090109
  Serious: No
  Sender: FDA-Public Use
  Company Number: A0712974A

PATIENT
  Age: 47 Year
  Sex: Female
  Weight: 54.5 kg

DRUGS (5)
  1. BUPROPION HYDROCHLORIDE [Suspect]
     Indication: DEPRESSION
     Dosage: 300MG SINGLE DOSE
     Route: 048
     Dates: start: 20080101, end: 20080101
  2. VALTREX [Concomitant]
     Indication: HERPES VIRUS INFECTION
     Route: 048
  3. TRAZODONE HCL [Concomitant]
     Indication: INSOMNIA
     Dosage: 50MG AS REQUIRED
     Route: 048
  4. AMBIEN [Concomitant]
     Indication: INSOMNIA
     Dosage: 10MG AS REQUIRED
     Route: 048
     Dates: start: 20071201
  5. IMITREX [Concomitant]
     Indication: MIGRAINE
     Dosage: 50MG AS REQUIRED
     Route: 048
     Dates: start: 20060101

REACTIONS (4)
  - ADVERSE EVENT [None]
  - FEELING ABNORMAL [None]
  - MALAISE [None]
  - THERAPEUTIC RESPONSE DECREASED [None]
